FAERS Safety Report 24462959 (Version 1)
Quarter: 2024Q4

REPORT INFORMATION
  Report Type: Spontaneous
  Country: US (occurrence: US)
  Receive Date: 20241018
  Receipt Date: 20241018
  Transmission Date: 20250114
  Serious: No
  Sender: RANBAXY
  Company Number: US-SUN PHARMACEUTICAL INDUSTRIES LTD-2023R1-408689

PATIENT
  Sex: Female

DRUGS (1)
  1. WINLEVI [Suspect]
     Active Substance: CLASCOTERONE
     Indication: Acne
     Dosage: 3 DOSES, TID
     Route: 065
     Dates: start: 20230911

REACTIONS (4)
  - Poor quality product administered [Unknown]
  - Product quality issue [Unknown]
  - Therapy cessation [Unknown]
  - Product use issue [Unknown]
